FAERS Safety Report 18771221 (Version 1)
Quarter: 2021Q1

REPORT INFORMATION
  Report Type: Other
  Country: CA (occurrence: CA)
  Receive Date: 20210122
  Receipt Date: 20210122
  Transmission Date: 20210419
  Serious: Yes (Other)
  Sender: FDA-Public Use
  Company Number: CA-INTERCEPT-PM2021000072

PATIENT
  Age: 64 Year
  Sex: Male

DRUGS (2)
  1. OCALIVA [Suspect]
     Active Substance: OBETICHOLIC ACID
     Indication: PRIMARY BILIARY CHOLANGITIS
     Dosage: 5 MILLIGRAM, QD
     Route: 048
     Dates: start: 20200512, end: 20201208
  2. URSO [Concomitant]
     Active Substance: URSODIOL
     Dosage: 750 MILLIGRAM, TID

REACTIONS (1)
  - Liver transplant [Recovered/Resolved]

NARRATIVE: CASE EVENT DATE: 20201209
